FAERS Safety Report 9950159 (Version 2)
Quarter: 2014Q1

REPORT INFORMATION
  Report Type: Report from Study
  Country: US (occurrence: US)
  Receive Date: 20140304
  Receipt Date: 20140304
  Transmission Date: 20141002
  Serious: Yes (Hospitalization)
  Sender: FDA-Public Use
  Company Number: US-ABBVIE-13P-163-1064203-00

PATIENT
  Age: 50 Year
  Sex: Female

DRUGS (10)
  1. HUMIRA [Suspect]
     Indication: RHEUMATOID ARTHRITIS
     Route: 058
     Dates: start: 201201
  2. HUMIRA [Suspect]
     Route: 058
     Dates: start: 20130303
  3. METHOTREXATE [Concomitant]
     Indication: RHEUMATOID ARTHRITIS
  4. FOLIC ACID [Concomitant]
     Indication: PRODUCT USED FOR UNKNOWN INDICATION
  5. VITAMIN D [Concomitant]
     Indication: VITAMIN D DECREASED
  6. FENTANYL [Concomitant]
     Indication: PAIN
     Dosage: PATCH
  7. OXYDOCONE [Concomitant]
     Indication: PAIN
     Dosage: 2 UP TO 4 TIMES DAILY
     Route: 048
  8. SOMA [Concomitant]
     Indication: MYELOPATHY
     Route: 048
  9. XANAX [Concomitant]
     Indication: ANXIETY
     Dosage: UP TO SIX DAILY
  10. DOXEPIN [Concomitant]
     Indication: INSOMNIA
     Dosage: AT BEDTIME

REACTIONS (7)
  - Pneumonia [Recovered/Resolved]
  - Pneumonia [Recovered/Resolved]
  - Hordeolum [Recovered/Resolved]
  - Pyrexia [Recovered/Resolved]
  - White blood cell count increased [Unknown]
  - Inflammation [Unknown]
  - Rheumatoid arthritis [Unknown]
